FAERS Safety Report 5814698-4 (Version None)
Quarter: 2008Q3

REPORT INFORMATION
  Report Type: 
  Country: None (occurrence: None)
  Receive Date: 20080718
  Receipt Date: 20080423
  Transmission Date: 20090109
  Serious: No
  Sender: FDA-Public Use
  Company Number: US-KINGPHARMUSA00001-K200800486

PATIENT

DRUGS (1)
  1. LEVOXYL [Suspect]
     Indication: THYROID DISORDER
     Dosage: 75 MCG, QD
     Route: 048
     Dates: start: 20000101

REACTIONS (3)
  - FATIGUE [None]
  - ORAL DISCOMFORT [None]
  - WEIGHT INCREASED [None]
